FAERS Safety Report 14081632 (Version 1)
Quarter: 2017Q4

REPORT INFORMATION
  Report Type: Spontaneous
  Country: US (occurrence: US)
  Receive Date: 20171013
  Receipt Date: 20171013
  Transmission Date: 20180321
  Serious: Yes (Other)
  Sender: FDA-Public Use
  Company Number: None

PATIENT
  Age: 33 Year
  Sex: Female
  Weight: 128.25 kg

DRUGS (3)
  1. ALLEGRA [Concomitant]
     Active Substance: FEXOFENADINE HYDROCHLORIDE
  2. SERTRALINE [Suspect]
     Active Substance: SERTRALINE HYDROCHLORIDE
     Indication: ANXIETY
     Dosage: ?          QUANTITY:1 TABLET(S);?
     Route: 048
     Dates: start: 20170801, end: 20171006
  3. CLOBETESOL OINTMENT [Concomitant]

REACTIONS (10)
  - Psychomotor hyperactivity [None]
  - Fatigue [None]
  - Product substitution issue [None]
  - Anxiety [None]
  - Hyperhidrosis [None]
  - Psychotic disorder [None]
  - Fear [None]
  - Dry mouth [None]
  - Gingival bleeding [None]
  - Feeling abnormal [None]

NARRATIVE: CASE EVENT DATE: 20171006
